FAERS Safety Report 10540513 (Version 1)
Quarter: 2014Q4

REPORT INFORMATION
  Report Type: Spontaneous
  Country: US (occurrence: None)
  Receive Date: 20141009
  Receipt Date: 20141009
  Transmission Date: 20150529
  Serious: Yes (Other)
  Sender: FDA-Public Use
  Company Number: 1000067275

PATIENT
  Age: 43 Year
  Sex: Male
  Weight: 77 kg

DRUGS (2)
  1. LEXAPRO [Suspect]
     Active Substance: ESCITALOPRAM OXALATE
     Indication: ANXIETY
     Route: 048
     Dates: start: 2008, end: 201404
  2. LEXAPRO [Suspect]
     Active Substance: ESCITALOPRAM OXALATE
     Indication: DEPRESSION
     Route: 048
     Dates: start: 2008, end: 201404

REACTIONS (5)
  - Weight increased [None]
  - Crying [None]
  - Dizziness [None]
  - Paraesthesia [None]
  - Fatigue [None]

NARRATIVE: CASE EVENT DATE: 2008
